FAERS Safety Report 14872717 (Version 3)
Quarter: 2022Q1

REPORT INFORMATION
  Report Type: Report from Study
  Country: BR (occurrence: BR)
  Receive Date: 20180510
  Receipt Date: 20220301
  Transmission Date: 20220423
  Serious: Yes (Other)
  Sender: FDA-Public Use
  Company Number: BR-BIOGEN-2018BI00574177

PATIENT
  Sex: Female

DRUGS (3)
  1. AVONEX PEN [Suspect]
     Active Substance: INTERFERON BETA-1A
     Indication: Multiple sclerosis
     Route: 050
     Dates: start: 2003, end: 20170920
  2. AVONEX PEN [Suspect]
     Active Substance: INTERFERON BETA-1A
     Route: 050
     Dates: start: 200505, end: 2018
  3. AVONEX PEN [Suspect]
     Active Substance: INTERFERON BETA-1A
     Route: 050
     Dates: start: 202101, end: 202106

REACTIONS (12)
  - Thyroid mass [Recovered/Resolved]
  - Visual impairment [Unknown]
  - Eye pain [Recovered/Resolved]
  - Arthropathy [Unknown]
  - Visual impairment [Not Recovered/Not Resolved]
  - Fall [Recovered/Resolved]
  - Dark circles under eyes [Unknown]
  - Muscular weakness [Unknown]
  - Pain in extremity [Recovered/Resolved]
  - Dizziness [Unknown]
  - Insomnia [Unknown]
  - Hyperthyroidism [Recovered/Resolved]
